FAERS Safety Report 10897511 (Version 1)
Quarter: 2015Q1

REPORT INFORMATION
  Report Type: Spontaneous
  Country: US (occurrence: None)
  Receive Date: 20150302
  Receipt Date: 20150302
  Transmission Date: 20150721
  Serious: Yes (Other)
  Sender: FDA-Public Use
  Company Number: None

PATIENT
  Age: 25 Year
  Sex: Female
  Weight: 54.43 kg

DRUGS (3)
  1. VITAMIN D [Concomitant]
     Active Substance: CHOLECALCIFEROL
  2. VIIBRYD [Suspect]
     Active Substance: VILAZODONE HYDROCHLORIDE
     Indication: PANIC ATTACK
     Dosage: 40MG, TAKE WITH FOOD QPM, TAKEN BY MOUTH
     Route: 048
     Dates: start: 20150123, end: 20150227
  3. LEVOTHYROXINE SODIUM. [Concomitant]
     Active Substance: LEVOTHYROXINE SODIUM

REACTIONS (7)
  - Crying [None]
  - Paraesthesia [None]
  - Sleep disorder [None]
  - Mental disorder [None]
  - Visual brightness [None]
  - Head banging [None]
  - Middle insomnia [None]

NARRATIVE: CASE EVENT DATE: 20150227
